FAERS Safety Report 7912578-1 (Version None)
Quarter: 2011Q4

REPORT INFORMATION
  Report Type: 
  Country: None (occurrence: None)
  Receive Date: 20111114
  Receipt Date: 20111108
  Transmission Date: 20120403
  Serious: Yes (Other)
  Sender: FDA-Public Use
  Company Number: BR-ABBOTT-11P-020-0872806-00

PATIENT
  Sex: Female
  Weight: 15 kg

DRUGS (4)
  1. DEPAKENE [Suspect]
     Indication: CONVULSION
  2. DEPAKENE [Suspect]
     Indication: CEREBRAL PALSY
     Dosage: 16 ML PER DAY
     Route: 048
  3. TEGRETOL [Concomitant]
     Indication: CONVULSION
     Dosage: 5 ML DAILY
     Route: 048
  4. PHENOBARBITAL TAB [Concomitant]
     Indication: CONVULSION
     Route: 048

REACTIONS (7)
  - DRUG INEFFECTIVE [None]
  - CYANOSIS [None]
  - BLOOD CHOLESTEROL INCREASED [None]
  - MUSCLE SPASMS [None]
  - HYPOTHYROIDISM [None]
  - PALPITATIONS [None]
  - CONVULSION [None]
